FAERS Safety Report 7507988-0 (Version None)
Quarter: 2011Q2

REPORT INFORMATION
  Report Type: 
  Country: None (occurrence: None)
  Receive Date: 20110527
  Receipt Date: 20110519
  Transmission Date: 20111010
  Serious: Yes (Other)
  Sender: FDA-Public Use
  Company Number: US-JNJFOC-20110509447

PATIENT
  Sex: Male

DRUGS (2)
  1. ULTRAM [Suspect]
     Indication: INTERVERTEBRAL DISC PROTRUSION
     Route: 065
  2. MS CONTIN [Suspect]
     Indication: INTERVERTEBRAL DISC PROTRUSION
     Route: 065

REACTIONS (5)
  - BACK PAIN [None]
  - BRONCHITIS [None]
  - ANXIETY [None]
  - DEPRESSION [None]
  - EAR PAIN [None]
